FAERS Safety Report 15278233 (Version 2)
Quarter: 2025Q4

REPORT INFORMATION
  Report Type: Report from Study
  Country: US (occurrence: US)
  Receive Date: 20180814
  Receipt Date: 20251120
  Transmission Date: 20260118
  Serious: No
  Sender: TAKEDA
  Company Number: US-SHIRE-US201830996

PATIENT
  Sex: Female

DRUGS (3)
  1. HUMAN IMMUNOGLOBULIN G [Suspect]
     Active Substance: HUMAN IMMUNOGLOBULIN G
     Indication: Primary immunodeficiency syndrome
     Dosage: UNK
  2. GAMMAGARD LIQUID [Suspect]
     Active Substance: HUMAN IMMUNOGLOBULIN G
     Indication: Primary immunodeficiency syndrome
     Dosage: 8 GRAM, 1/WEEK
  3. GAMMAGARD LIQUID [Suspect]
     Active Substance: HUMAN IMMUNOGLOBULIN G
     Indication: Immunodeficiency common variable

REACTIONS (8)
  - Oral candidiasis [Recovering/Resolving]
  - Candida infection [Unknown]
  - Fibromyalgia [Unknown]
  - Photosensitivity reaction [Unknown]
  - Hypoacusis [Unknown]
  - Speech disorder [Unknown]
  - Gait disturbance [Unknown]
  - Neck injury [Unknown]
